FAERS Safety Report 7501722-6 (Version None)
Quarter: 2011Q2

REPORT INFORMATION
  Report Type: 
  Country: None (occurrence: None)
  Receive Date: 20110525
  Receipt Date: 20110516
  Transmission Date: 20111010
  Serious: Yes (Hospitalization)
  Sender: FDA-Public Use
  Company Number: US-BIOGENIDEC-199762

PATIENT
  Age: 38 Year
  Sex: Male
  Weight: 117 kg

DRUGS (2)
  1. SERZONE [Concomitant]
     Indication: DEPRESSION
     Dates: end: 20040501
  2. AVONEX [Suspect]
     Indication: MULTIPLE SCLEROSIS
     Route: 030
     Dates: start: 20040511, end: 20040518

REACTIONS (7)
  - DECREASED APPETITE [None]
  - INFLUENZA LIKE ILLNESS [None]
  - PYREXIA [None]
  - ASTHENIA [None]
  - PAIN [None]
  - WEIGHT DECREASED [None]
  - LIVER FUNCTION TEST ABNORMAL [None]
